FAERS Safety Report 5480852-7 (Version None)
Quarter: 2007Q4

REPORT INFORMATION
  Report Type: 
  Country: None (occurrence: None)
  Receive Date: 20071009
  Receipt Date: 20070924
  Transmission Date: 20080405
  Serious: No
  Sender: FDA-Public Use
  Company Number: US-BOEHRINGER INGELHEIM PHARMACEUTICALS, INC.-2007-BP-21694BP

PATIENT
  Age: 41 Year
  Sex: Female

DRUGS (6)
  1. MIRAPEX [Suspect]
     Indication: BIPOLAR I DISORDER
     Route: 048
     Dates: start: 20070501
  2. GEODON [Concomitant]
     Route: 048
  3. LIPITOR [Concomitant]
     Route: 048
  4. CLOZARIL [Concomitant]
     Route: 048
  5. LITHIUM CARBONATE [Concomitant]
     Route: 048
  6. TOPAMAX [Concomitant]
     Route: 048

REACTIONS (3)
  - HEART RATE INCREASED [None]
  - TACHYCARDIA [None]
  - VOMITING [None]
